FAERS Safety Report 6474325-2 (Version None)
Quarter: 2009Q4

REPORT INFORMATION
  Report Type: 
  Country: None (occurrence: None)
  Receive Date: 20091204
  Receipt Date: 20091126
  Transmission Date: 20100525
  Serious: Yes (Death, Hospitalization)
  Sender: FDA-Public Use
  Company Number: GXKR2007GB01462

PATIENT
  Age: 84 Year
  Sex: Female

DRUGS (3)
  1. WARFARIN (NGX) [Suspect]
     Indication: ATRIAL FIBRILLATION
  2. WARFARIN (NGX) [Suspect]
     Indication: MITRAL VALVE REPLACEMENT
  3. CLOZARIL [Suspect]
     Route: 065

REACTIONS (4)
  - ATRIAL FIBRILLATION [None]
  - HYPERTENSION [None]
  - LOWER RESPIRATORY TRACT INFECTION [None]
  - SUBARACHNOID HAEMORRHAGE [None]
